FAERS Safety Report 14828516 (Version 1)
Quarter: 2018Q2

REPORT INFORMATION
  Report Type: Spontaneous
  Country: FR (occurrence: FR)
  Receive Date: 20180430
  Receipt Date: 20180430
  Transmission Date: 20180711
  Serious: Yes (Death, Congenital Anomaly)
  Sender: FDA-Public Use
  Company Number: FR-TEVA-2018-FR-886906

PATIENT

DRUGS (1)
  1. MODAFINIL. [Suspect]
     Active Substance: MODAFINIL
     Indication: NARCOLEPSY
     Route: 064

REACTIONS (7)
  - Polyhydramnios [Fatal]
  - Ultrasound antenatal screen [Fatal]
  - Foetal death [Fatal]
  - Single functional kidney [Fatal]
  - Cerebral ventricle dilatation [Fatal]
  - Pulmonary malformation [Fatal]
  - Dysmorphism [Fatal]
